FAERS Safety Report 5533946-1 (Version None)
Quarter: 2007Q4

REPORT INFORMATION
  Report Type: 
  Country: None (occurrence: None)
  Receive Date: 20071129
  Receipt Date: 20071120
  Transmission Date: 20080405
  Serious: Yes (Other)
  Sender: FDA-Public Use
  Company Number: 17876

PATIENT
  Age: 5 Year
  Sex: Female

DRUGS (3)
  1. BLEOMYCIN [Suspect]
     Indication: CRANIOPHARYNGIOMA
     Dosage: 3 MG 3/WK OTHER
     Route: 050
  2. BLEOMYCIN [Suspect]
     Indication: CRANIOPHARYNGIOMA
     Dosage: 3 MG WEEKLY OTHER
     Route: 050
  3. SODIUM CHLORIDE 0.9% [Concomitant]

REACTIONS (13)
  - DEVICE LEAKAGE [None]
  - DIPLOPIA [None]
  - EYELID PTOSIS [None]
  - FATIGUE [None]
  - HEADACHE [None]
  - HEMIPARESIS [None]
  - HYDROCEPHALUS [None]
  - HYPOTHALAMO-PITUITARY DISORDER [None]
  - LETHARGY [None]
  - MYDRIASIS [None]
  - OEDEMA [None]
  - PAPILLOEDEMA [None]
  - VOMITING [None]
